FAERS Safety Report 5323023-7 (Version None)
Quarter: 2007Q2

REPORT INFORMATION
  Report Type: 
  Country: None (occurrence: None)
  Receive Date: 20070220
  Receipt Date: 20061103
  Transmission Date: 20071010
  Serious: No
  Sender: FDA-Public Use
  Company Number: WAES 0611USA01585

PATIENT
  Age: 64 Year
  Sex: Female

DRUGS (12)
  1. JANUVIA [Suspect]
     Indication: DIABETES MELLITUS NON-INSULIN-DEPENDENT
     Dosage: 100 MG/DAILY/PO
     Route: 048
     Dates: start: 20061026, end: 20061027
  2. ADVAIR DISKUS 100/50 [Concomitant]
  3. AVANDIA [Concomitant]
  4. CLARITIN-D [Concomitant]
  5. CRESTOR [Concomitant]
  6. ESTRACE [Concomitant]
  7. MOTRIN [Concomitant]
  8. NEXIUM [Concomitant]
  9. ZETIA [Concomitant]
  10. ALBUTEROL [Concomitant]
  11. LEVOTHYROXINE SODIUM [Concomitant]
  12. METFORMIN HCL [Concomitant]

REACTIONS (1)
  - TACHYCARDIA [None]
